FAERS Safety Report 9252788 (Version 1)
Quarter: 2013Q2

REPORT INFORMATION
  Report Type: Spontaneous
  Country: US (occurrence: US)
  Receive Date: 20130424
  Receipt Date: 20130424
  Transmission Date: 20140414
  Serious: Yes (Other)
  Sender: FDA-Public Use
  Company Number: US-AMGEN-USASP2013026609

PATIENT
  Age: 59 Year
  Sex: Female

DRUGS (3)
  1. ENBREL [Suspect]
     Indication: SYSTEMIC LUPUS ERYTHEMATOSUS
     Dosage: 50 MG, QWK
     Dates: start: 20070301, end: 201204
  2. ORENCIA [Suspect]
     Dosage: UNK
  3. PLAQUENIL                          /00072602/ [Concomitant]
     Dosage: 200 MG, BID (ONE TAB TWICE DAILY)
     Dates: start: 2007

REACTIONS (4)
  - Infusion related reaction [Recovered/Resolved]
  - Convulsion [Recovered/Resolved]
  - Palpitations [Recovered/Resolved]
  - Systemic lupus erythematosus [Not Recovered/Not Resolved]
